FAERS Safety Report 12525222 (Version 2)
Quarter: 2016Q3

REPORT INFORMATION
  Report Type: Report from Study
  Country: JP (occurrence: JP)
  Receive Date: 20160704
  Receipt Date: 20160901
  Transmission Date: 20161109
  Serious: Yes (Hospitalization)
  Sender: FDA-Public Use
  Company Number: JP-BRISTOL-MYERS SQUIBB COMPANY-BMS-2016-053984

PATIENT
  Age: 70 Year
  Sex: Male
  Weight: 68 kg

DRUGS (17)
  1. ARTIST [Concomitant]
     Active Substance: CARVEDILOL
     Indication: CONGESTIVE CARDIOMYOPATHY
     Dosage: 7.5 MG, QD
     Route: 048
     Dates: end: 20140904
  2. CARBOCISTEINE [Concomitant]
     Active Substance: CARBOCYSTEINE
     Indication: RHINITIS ALLERGIC
     Dosage: 150 MG, QD
     Route: 048
  3. BLOPRESS [Concomitant]
     Active Substance: CANDESARTAN CILEXETIL
     Indication: VENTRICULAR TACHYCARDIA
  4. APIXABAN [Suspect]
     Active Substance: APIXABAN
     Indication: CEREBROVASCULAR ACCIDENT PROPHYLAXIS
     Dosage: 5 MG, BID
     Route: 048
     Dates: start: 20140530, end: 20150728
  5. RABEPRAZOLE [Concomitant]
     Active Substance: RABEPRAZOLE
     Indication: PROPHYLAXIS
     Dosage: 10 MG, QD
     Route: 048
  6. FEBURIC [Concomitant]
     Active Substance: FEBUXOSTAT
     Indication: HYPERURICAEMIA
     Dosage: 10 MG, QD
     Route: 048
  7. ARTIST [Concomitant]
     Active Substance: CARVEDILOL
     Indication: LEFT VENTRICULAR DYSFUNCTION
  8. MAINTATE [Concomitant]
     Active Substance: BISOPROLOL FUMARATE
     Indication: VENTRICULAR TACHYCARDIA
  9. LISINOPRIL. [Concomitant]
     Active Substance: LISINOPRIL
     Indication: LEFT VENTRICULAR DYSFUNCTION
  10. BLOPRESS [Concomitant]
     Active Substance: CANDESARTAN CILEXETIL
     Indication: CARDIAC FAILURE
     Dosage: 4 MG, QD
     Route: 048
     Dates: start: 20140627
  11. MAINTATE [Concomitant]
     Active Substance: BISOPROLOL FUMARATE
     Indication: CARDIAC FAILURE
     Dosage: 2.5 MG, QD
     Route: 048
     Dates: start: 20140904
  12. ZETIA [Concomitant]
     Active Substance: EZETIMIBE
     Indication: DYSLIPIDAEMIA
     Dosage: 10 MG, QD
     Route: 048
  13. SOTACOR [Concomitant]
     Active Substance: SOTALOL HYDROCHLORIDE
     Indication: VENTRICULAR TACHYCARDIA
     Dosage: 80 MG, QD
     Route: 048
  14. APIXABAN [Suspect]
     Active Substance: APIXABAN
     Dosage: 5 MG, BID
     Route: 048
     Dates: start: 20150903
  15. LISINOPRIL. [Concomitant]
     Active Substance: LISINOPRIL
     Indication: CONGESTIVE CARDIOMYOPATHY
     Dosage: 5 MG, QD
     Route: 048
     Dates: start: 20140626
  16. ISOSORBIDE MONONITRATE. [Concomitant]
     Active Substance: ISOSORBIDE MONONITRATE
     Indication: PRINZMETAL ANGINA
     Dosage: 20 MG, QD
     Route: 048
  17. PRANLUKAST [Concomitant]
     Active Substance: PRANLUKAST
     Indication: RHINITIS ALLERGIC
     Dosage: UNK
     Route: 048
     Dates: start: 20150616

REACTIONS (2)
  - Anal fistula [Recovered/Resolved]
  - Fistula repair [Unknown]

NARRATIVE: CASE EVENT DATE: 201506
